FAERS Safety Report 6373803-4 (Version None)
Quarter: 2009Q3

REPORT INFORMATION
  Report Type: 
  Country: None (occurrence: None)
  Receive Date: 20090924
  Receipt Date: 20090602
  Transmission Date: 20100115
  Serious: Yes (Other)
  Sender: FDA-Public Use
  Company Number: US-ASTRAZENECA-2009UW14008

PATIENT
  Sex: Female
  Weight: 111.1 kg

DRUGS (2)
  1. SEROQUEL [Suspect]
     Indication: SCHIZOPHRENIA
     Route: 048
     Dates: start: 20020101
  2. ZYPREXA [Concomitant]

REACTIONS (5)
  - PAIN IN EXTREMITY [None]
  - PANCREATITIS [None]
  - SLEEP TALKING [None]
  - THERAPEUTIC RESPONSE UNEXPECTED [None]
  - TYPE 1 DIABETES MELLITUS [None]
